FAERS Safety Report 7685937-2 (Version None)
Quarter: 2011Q3

REPORT INFORMATION
  Report Type: 
  Country: None (occurrence: None)
  Receive Date: 20110816
  Receipt Date: 20110803
  Transmission Date: 20111222
  Serious: Yes (Other)
  Sender: FDA-Public Use
  Company Number: PHHY2011TR70815

PATIENT
  Age: 26 Year
  Sex: Female

DRUGS (3)
  1. LYNESTEROL [Concomitant]
     Dosage: UNK UKN, UNK
  2. BROMOCRIPTINE MESYLATE [Suspect]
     Indication: HYPERPROLACTINAEMIA
     Dosage: UNK UKN, UNK
     Dates: start: 20070201
  3. CABERGOLINE [Concomitant]
     Dosage: UNK UKN, UNK

REACTIONS (2)
  - OLIGOMENORRHOEA [None]
  - LYMPHOCYTIC HYPOPHYSITIS [None]
